FAERS Safety Report 25876578 (Version 1)
Quarter: 2025Q4

REPORT INFORMATION
  Report Type: Spontaneous
  Country: CN (occurrence: CN)
  Receive Date: 20251003
  Receipt Date: 20251003
  Transmission Date: 20260118
  Serious: Yes (Hospitalization)
  Sender: ROCHE
  Company Number: CN-ROCHE-10000400322

PATIENT
  Age: 67 Year
  Sex: Female

DRUGS (7)
  1. RITUXIMAB [Suspect]
     Active Substance: RITUXIMAB
     Indication: Lymphoma
     Route: 042
     Dates: start: 20250916, end: 20250916
  2. RITUXIMAB [Suspect]
     Active Substance: RITUXIMAB
     Indication: Pneumonia
  3. OBINUTUZUMAB [Concomitant]
     Active Substance: OBINUTUZUMAB
     Dates: start: 20250919
  4. SODIUM CHLORIDE [Concomitant]
     Active Substance: SODIUM CHLORIDE
     Route: 042
     Dates: start: 20250916, end: 20250916
  5. SODIUM CHLORIDE [Concomitant]
     Active Substance: SODIUM CHLORIDE
     Route: 042
     Dates: start: 20250919
  6. SODIUM CHLORIDE [Concomitant]
     Active Substance: SODIUM CHLORIDE
     Route: 042
     Dates: start: 20250916
  7. ZANUBRUTINIB [Concomitant]
     Active Substance: ZANUBRUTINIB
     Route: 048
     Dates: start: 20250921

REACTIONS (3)
  - Chest discomfort [Recovering/Resolving]
  - Temperature intolerance [Recovered/Resolved]
  - Pyrexia [Recovered/Resolved]

NARRATIVE: CASE EVENT DATE: 20250916
